FAERS Safety Report 18692760 (Version 1)
Quarter: 2021Q1

REPORT INFORMATION
  Report Type: Spontaneous
  Country: CN (occurrence: CN)
  Receive Date: 20210104
  Receipt Date: 20210104
  Transmission Date: 20210419
  Serious: Yes (Hospitalization, Other)
  Sender: FDA-Public Use
  Company Number: CN-ROCHE-2743044

PATIENT
  Age: 51 Year
  Sex: Male

DRUGS (1)
  1. LUCENTIS [Suspect]
     Active Substance: RANIBIZUMAB
     Indication: DIABETIC RETINAL OEDEMA
     Route: 031
     Dates: start: 20201216

REACTIONS (7)
  - Eye pain [Unknown]
  - Vision blurred [Unknown]
  - Anterior chamber inflammation [Unknown]
  - Endophthalmitis [Recovering/Resolving]
  - Vitreous floaters [Unknown]
  - Eye swelling [Unknown]
  - Intraocular pressure increased [Unknown]

NARRATIVE: CASE EVENT DATE: 20201216
